APPROVED DRUG PRODUCT: TESTOSTERONE CYPIONATE-ESTRADIOL CYPIONATE
Active Ingredient: ESTRADIOL CYPIONATE; TESTOSTERONE CYPIONATE
Strength: 2MG/ML;50MG/ML
Dosage Form/Route: INJECTABLE;INJECTION
Application: A085603 | Product #001
Applicant: WATSON LABORATORIES INC
Approved: Mar 13, 1986 | RLD: No | RS: No | Type: DISCN